FAERS Safety Report 20832898 (Version 1)
Quarter: 2022Q2

REPORT INFORMATION
  Report Type: 
  Country: None (occurrence: None)
  Receive Date: 20220516
  Receipt Date: 20220516
  Transmission Date: 20220721
  Serious: No
  Sender: FDA-Public Use
  Company Number: GB-ROCHE-3048873

PATIENT

DRUGS (29)
  1. BONVIVA [Suspect]
     Active Substance: IBANDRONATE SODIUM
     Dates: start: 20150518
  2. PERJETA [Suspect]
     Active Substance: PERTUZUMAB
     Dates: start: 20151217, end: 20160308
  3. PERJETA [Suspect]
     Active Substance: PERTUZUMAB
     Dosage: LOADING DOSE
     Dates: start: 20160623, end: 20160623
  4. PERJETA [Suspect]
     Active Substance: PERTUZUMAB
     Dosage: MAINTAINANCE DOSE
     Dates: start: 20150825, end: 20151117
  5. PERJETA [Suspect]
     Active Substance: PERTUZUMAB
     Dosage: MAINTAINANCE DOSE
     Dates: start: 20160715
  6. PERJETA [Suspect]
     Active Substance: PERTUZUMAB
     Dosage: ONE CYCLE (LOADING DOSE)
  7. HERCEPTIN [Suspect]
     Active Substance: TRASTUZUMAB
     Dosage: LOADING DOSE
     Dates: start: 20151217, end: 20160308
  8. HERCEPTIN [Suspect]
     Active Substance: TRASTUZUMAB
     Dates: start: 20150803, end: 20150803
  9. EXEMESTANE [Suspect]
     Active Substance: EXEMESTANE
     Dates: start: 20150518
  10. DOCETAXEL [Suspect]
     Active Substance: DOCETAXEL
     Dates: start: 20150814, end: 20151117
  11. HYALURONIDASE (HUMAN RECOMBINANT)\TRASTUZUMAB [Suspect]
     Active Substance: HYALURONIDASE (HUMAN RECOMBINANT)\TRASTUZUMAB
     Dates: start: 20160623
  12. HYALURONIDASE (HUMAN RECOMBINANT)\TRASTUZUMAB [Suspect]
     Active Substance: HYALURONIDASE (HUMAN RECOMBINANT)\TRASTUZUMAB
     Dates: end: 20160308
  13. HYALURONIDASE (HUMAN RECOMBINANT)\TRASTUZUMAB [Suspect]
     Active Substance: HYALURONIDASE (HUMAN RECOMBINANT)\TRASTUZUMAB
     Dates: start: 20150825, end: 20151117
  14. HYALURONIDASE [Suspect]
     Active Substance: HYALURONIDASE
     Dates: start: 20160723
  15. HYALURONIDASE (HUMAN RECOMBINANT) [Suspect]
     Active Substance: HYALURONIDASE (HUMAN RECOMBINANT)
     Dates: start: 20160623
  16. HYALURONIDASE (HUMAN RECOMBINANT) [Suspect]
     Active Substance: HYALURONIDASE (HUMAN RECOMBINANT)
     Dates: end: 20160308
  17. HYALURONIDASE (HUMAN RECOMBINANT) [Suspect]
     Active Substance: HYALURONIDASE (HUMAN RECOMBINANT)
     Dates: start: 20150825, end: 20151117
  18. AMOXICILLIN\CLAVULANATE POTASSIUM [Concomitant]
     Active Substance: AMOXICILLIN\CLAVULANATE POTASSIUM
  19. DENOSUMAB [Concomitant]
     Active Substance: DENOSUMAB
     Dates: start: 20160127
  20. ACETAMINOPHEN [Concomitant]
     Active Substance: ACETAMINOPHEN
  21. BISOPROLOL [Concomitant]
     Active Substance: BISOPROLOL
  22. PIPERACILLIN SODIUM\TAZOBACTAM SODIUM [Concomitant]
     Active Substance: PIPERACILLIN SODIUM\TAZOBACTAM SODIUM
  23. MEROPENEM [Concomitant]
     Active Substance: MEROPENEM
  24. DEXAMETHASONE [Concomitant]
     Active Substance: DEXAMETHASONE
     Dates: start: 20150803
  25. GENTAMICIN [Concomitant]
     Active Substance: GENTAMICIN
  26. RAMIPRIL [Concomitant]
     Active Substance: RAMIPRIL
  27. CIPROFLOXACIN [Concomitant]
     Active Substance: CIPROFLOXACIN
  28. BENZYDAMINE [Concomitant]
     Active Substance: BENZYDAMINE
  29. PIPERACILLIN SODIUM\TAZOBACTAM SODIUM [Concomitant]
     Active Substance: PIPERACILLIN SODIUM\TAZOBACTAM SODIUM

REACTIONS (17)
  - Epistaxis [None]
  - Mucosal inflammation [None]
  - Gingival swelling [None]
  - Rash [None]
  - Alopecia [None]
  - Off label use [None]
  - Ejection fraction decreased [None]
  - Fatigue [None]
  - Influenza like illness [None]
  - Anaemia [None]
  - Diarrhoea [None]
  - Hot flush [None]
  - Vascular device infection [None]
  - Lymphoedema [None]
  - Gastrooesophageal reflux disease [None]
  - Vascular device infection [None]
  - Device related infection [None]

NARRATIVE: CASE EVENT DATE: 20150801
